FAERS Safety Report 14977794 (Version 3)
Quarter: 2018Q2

REPORT INFORMATION
  Report Type: Report from Study
  Country: KR (occurrence: KR)
  Receive Date: 20180606
  Receipt Date: 20180613
  Transmission Date: 20180711
  Serious: Yes (Hospitalization)
  Sender: FDA-Public Use
  Company Number: KR-ROCHE-2134128

PATIENT
  Age: 32 Year
  Sex: Female
  Weight: 59.9 kg

DRUGS (18)
  1. CIMETIDINE [Concomitant]
     Active Substance: CIMETIDINE
     Indication: PREMEDICATION
     Route: 065
     Dates: start: 20180503, end: 20180503
  2. MAGNESIUM OXIDE. [Concomitant]
     Active Substance: MAGNESIUM OXIDE
     Indication: CONSTIPATION PROPHYLAXIS
     Route: 065
     Dates: start: 20180414
  3. METOCLOPRAMIDE HCL [Concomitant]
     Active Substance: METOCLOPRAMIDE HYDROCHLORIDE
     Indication: NAUSEA
     Route: 065
     Dates: start: 20180504
  4. BEVACIZUMAB. [Suspect]
     Active Substance: BEVACIZUMAB
     Indication: OVARIAN CANCER
     Dosage: MOST RECENT DOSE 963 MG OF BEVACIZUMAB PRIOR TO SAE ONSET RECEIVED ON 03 MAY 2018
     Route: 042
     Dates: start: 20180413
  5. CHLORPHENIRAMINE. [Concomitant]
     Active Substance: CHLORPHENIRAMINE
     Indication: PREMEDICATION
     Route: 065
     Dates: start: 20180503, end: 20180503
  6. FILGRASTIM [Concomitant]
     Active Substance: FILGRASTIM
     Indication: NEUTROPHIL COUNT DECREASED
     Route: 065
     Dates: start: 20180523, end: 20180523
  7. PACLITAXEL. [Suspect]
     Active Substance: PACLITAXEL
     Indication: OVARIAN CANCER
     Dosage: MOST RECENT DOSE 290 MG OF PACLITAXEL PRIOR TO SAE ONSET RECEIVED ON 24 MAY 2018
     Route: 042
     Dates: start: 20180413
  8. DEXAMETHASONE. [Concomitant]
     Active Substance: DEXAMETHASONE
     Indication: PREMEDICATION
     Route: 042
     Dates: start: 20180503, end: 20180503
  9. CHLORPHENIRAMINE. [Concomitant]
     Active Substance: CHLORPHENIRAMINE
     Route: 065
     Dates: start: 20180524, end: 20180524
  10. ULTRACET SEMI [Concomitant]
     Indication: PAIN PROPHYLAXIS
     Route: 065
     Dates: start: 20180414
  11. BENZYDAMINE HCL [Concomitant]
     Indication: INFLUENZA LIKE ILLNESS
     Route: 065
     Dates: start: 20180414
  12. LACIDOFIL [Concomitant]
     Active Substance: LACTOBACILLUS ACIDOPHILUS\LACTOBACILLUS RHAMNOSUS
     Indication: CONSTIPATION PROPHYLAXIS
     Route: 065
     Dates: start: 20180414
  13. RAMOSETRON HCL [Concomitant]
     Indication: PREMEDICATION
     Route: 065
     Dates: start: 20180503, end: 20180503
  14. DEXAMETHASONE. [Concomitant]
     Active Substance: DEXAMETHASONE
     Route: 042
     Dates: start: 20180524, end: 20180524
  15. CARBOPLATIN. [Suspect]
     Active Substance: CARBOPLATIN
     Indication: OVARIAN CANCER
     Dosage: MOST RECENT DOSE 805 MG OF CARBOPLATIN PRIOR TO SAE ONSET RECEIVED ON 24 MAY 2018?DOSE AS PER PROTOC
     Route: 042
     Dates: start: 20180413
  16. ATEZOLIZUMAB. [Suspect]
     Active Substance: ATEZOLIZUMAB
     Indication: OVARIAN CANCER
     Dosage: MOST RECENT DOSE OF ATEZOLIZUMAB PRIOR TO SAE ONSET RECEIVED ON 24 MAY 2018
     Route: 042
     Dates: start: 20180413
  17. RAMOSETRON HCL [Concomitant]
     Route: 065
     Dates: start: 20180524, end: 20180524
  18. CIMETIDINE [Concomitant]
     Active Substance: CIMETIDINE
     Route: 065
     Dates: start: 20180524, end: 20180524

REACTIONS (1)
  - Febrile neutropenia [Not Recovered/Not Resolved]

NARRATIVE: CASE EVENT DATE: 20180601
